FAERS Safety Report 22267609 (Version 1)
Quarter: 2023Q2

REPORT INFORMATION
  Report Type: Spontaneous
  Country: CA (occurrence: CA)
  Receive Date: 20230430
  Receipt Date: 20230430
  Transmission Date: 20230721
  Serious: Yes (Other)
  Sender: FDA-Public Use
  Company Number: CA-AUROBINDO-AUR-APL-2023-033590

PATIENT
  Age: 49 Year
  Sex: Male

DRUGS (6)
  1. PERINDOPRIL [Suspect]
     Active Substance: PERINDOPRIL
     Indication: Proteinuria
     Dosage: 4 MILLIGRAM, ONCE A DAY
     Route: 048
  2. PERINDOPRIL [Suspect]
     Active Substance: PERINDOPRIL
     Indication: Hypertension
     Dosage: 16 MILLIGRAM, ONCE A DAY
     Route: 048
  3. FENOFIBRATE [Suspect]
     Active Substance: FENOFIBRATE
     Indication: Nephropathy
     Dosage: 160 MILLIGRAM, ONCE A DAY
     Route: 048
  4. FENOFIBRATE [Suspect]
     Active Substance: FENOFIBRATE
     Indication: Lipoprotein metabolism disorder
  5. ROSUVASTATIN [Concomitant]
     Active Substance: ROSUVASTATIN
     Indication: Dyslipidaemia
     Dosage: 10 MILLIGRAM, ONCE A DAY
     Route: 048
  6. ROSUVASTATIN [Concomitant]
     Active Substance: ROSUVASTATIN
     Dosage: 5 MILLIGRAM, ONCE A DAY
     Route: 048

REACTIONS (2)
  - Blood creatinine increased [Recovered/Resolved]
  - Drug ineffective [Recovered/Resolved]
